FAERS Safety Report 12079628 (Version 3)
Quarter: 2017Q1

REPORT INFORMATION
  Report Type: Spontaneous
  Country: US (occurrence: US)
  Receive Date: 20160216
  Receipt Date: 20170123
  Transmission Date: 20170428
  Serious: No
  Sender: FDA-Public Use
  Company Number: US-PFIZER INC-2016070796

PATIENT
  Age: 56 Year
  Sex: Male

DRUGS (3)
  1. RELPAX [Suspect]
     Active Substance: ELETRIPTAN HYDROBROMIDE
     Indication: MIGRAINE
     Dosage: 40 MG, AT BEGINNING OF MIGRAINE. NOT MORE THAN 2 IN 1 DAY/CAN TAKE 1 IN 1 HR NO MORE THAN 2 A DAY.)
     Route: 048
  2. CELEBREX [Suspect]
     Active Substance: CELECOXIB
     Dosage: 200 MG, AS NEEDED (WITH MEAL)
  3. RELPAX [Suspect]
     Active Substance: ELETRIPTAN HYDROBROMIDE
     Dosage: 40 MG, 1 TAB P.O AT ONSET OF MIGRAINE. CAN TAKE 1 IN 1 HR NO MORE THAN 2 A DAY
     Route: 048

REACTIONS (1)
  - Headache [Unknown]
